FAERS Safety Report 8087161 (Version 5)
Quarter: 2013Q4

REPORT INFORMATION
  Report Type: Spontaneous
  Country: US (occurrence: US)
  Receive Date: 20110811
  Receipt Date: 20131031
  Transmission Date: 20140711
  Serious: Yes (Disabling, Other)
  Sender: FDA-Public Use
  Company Number: US-ASTRAZENECA-2011SE46449

PATIENT
  Age: 73 Year
  Sex: Female
  Weight: 79.4 kg

DRUGS (6)
  1. NEXIUM [Suspect]
     Indication: ULCER
     Route: 048
     Dates: start: 2001, end: 201305
  2. TOPROL XL [Suspect]
     Route: 048
  3. VALIUM [Concomitant]
     Route: 048
  4. HEART TABLET [Concomitant]
     Route: 048
  5. BLOOD PRESSURE TABLET [Concomitant]
     Indication: HYPERTENSION
     Route: 048
  6. DIABETIC PILL [Concomitant]
     Indication: DIABETES MELLITUS
     Route: 048

REACTIONS (15)
  - Blindness unilateral [Unknown]
  - Deafness [Unknown]
  - Spinal column injury [Unknown]
  - Arthritis [Unknown]
  - Dysarthria [Unknown]
  - Diabetes mellitus [Unknown]
  - Fall [Unknown]
  - Pain [Unknown]
  - Spinal pain [Unknown]
  - Dyspepsia [Unknown]
  - Malaise [Unknown]
  - Abdominal pain upper [Unknown]
  - Abdominal discomfort [Unknown]
  - Drug dose omission [Unknown]
  - Intentional drug misuse [Unknown]
